FAERS Safety Report 6344385-8 (Version None)
Quarter: 2009Q3

REPORT INFORMATION
  Report Type: 
  Country: None (occurrence: None)
  Receive Date: 20090908
  Receipt Date: 20090824
  Transmission Date: 20100115
  Serious: Yes (Other)
  Sender: FDA-Public Use
  Company Number: US-PFIZER INC-2009261247

PATIENT
  Sex: Male
  Weight: 81.633 kg

DRUGS (1)
  1. CHANTIX [Suspect]
     Dates: start: 20090821, end: 20090821

REACTIONS (5)
  - ABNORMAL BEHAVIOUR [None]
  - DYSSTASIA [None]
  - GAIT DISTURBANCE [None]
  - RENAL DISORDER [None]
  - SUICIDAL IDEATION [None]
